FAERS Safety Report 21203558 (Version 1)
Quarter: 2022Q3

REPORT INFORMATION
  Report Type: Spontaneous
  Country: FR (occurrence: FR)
  Receive Date: 20220811
  Receipt Date: 20220811
  Transmission Date: 20221027
  Serious: Yes (Hospitalization, Other)
  Sender: FDA-Public Use
  Company Number: None

PATIENT
  Age: 74 Year
  Sex: Male
  Weight: 72 kg

DRUGS (8)
  1. HYDREA [Suspect]
     Active Substance: HYDROXYUREA
     Indication: Thrombocytosis
     Route: 048
     Dates: start: 20220326
  2. KARDEGIC [Concomitant]
     Active Substance: ASPIRIN DL-LYSINE
     Indication: Product used for unknown indication
     Route: 065
  3. IRBESARTAN [Concomitant]
     Active Substance: IRBESARTAN
     Indication: Product used for unknown indication
     Route: 065
  4. OXAZEPAM [Concomitant]
     Active Substance: OXAZEPAM
     Indication: Product used for unknown indication
     Route: 065
  5. FLUINDIONE [Concomitant]
     Active Substance: FLUINDIONE
     Indication: Product used for unknown indication
     Route: 065
  6. PANTOPRAZOLE [Concomitant]
     Active Substance: PANTOPRAZOLE
     Indication: Product used for unknown indication
     Route: 065
  7. LIPTRUZET [Concomitant]
     Active Substance: ATORVASTATIN CALCIUM\EZETIMIBE
     Indication: Product used for unknown indication
     Dosage: 10MG/ 20 MG
     Route: 065
  8. METFORMIN HYDROCHLORIDE [Concomitant]
     Active Substance: METFORMIN HYDROCHLORIDE
     Indication: Product used for unknown indication
     Route: 065

REACTIONS (1)
  - Systemic inflammatory response syndrome [Recovered/Resolved]

NARRATIVE: CASE EVENT DATE: 20220329
